FAERS Safety Report 5941774-8 (Version None)
Quarter: 2008Q4

REPORT INFORMATION
  Report Type: 
  Country: None (occurrence: None)
  Receive Date: 20081105
  Receipt Date: 20081029
  Transmission Date: 20090506
  Serious: Yes (Hospitalization)
  Sender: FDA-Public Use
  Company Number: PHHY2008RU26476

PATIENT
  Sex: Female

DRUGS (2)
  1. TRILEPTAL [Suspect]
     Dosage: 900 MG, QD
     Dates: start: 20080419
  2. TRILEPTAL [Suspect]
     Dosage: 600MG/DAY
     Dates: end: 20081024

REACTIONS (9)
  - CHILLS [None]
  - DIZZINESS [None]
  - DYSPNOEA [None]
  - ELECTROENCEPHALOGRAM ABNORMAL [None]
  - HEADACHE [None]
  - LOSS OF CONSCIOUSNESS [None]
  - NAUSEA [None]
  - TEMPORAL LOBE EPILEPSY [None]
  - TONIC CONVULSION [None]
